FAERS Safety Report 10772273 (Version 1)
Quarter: 2015Q1

REPORT INFORMATION
  Report Type: Spontaneous
  Country: BR (occurrence: BR)
  Receive Date: 20150206
  Receipt Date: 20150206
  Transmission Date: 20150721
  Serious: Yes (Hospitalization, Other)
  Sender: FDA-Public Use
  Company Number: BR-009507513-1502BRA001851

PATIENT
  Age: 32 Year
  Sex: Female
  Weight: 103 kg

DRUGS (1)
  1. NUVARING [Suspect]
     Active Substance: ETHINYL ESTRADIOL\ETONOGESTREL
     Indication: CONTRACEPTION
     Dosage: 1 RING EVERY 3 WEEKS AND 1 WEEK OF RING FREE INTERVAL
     Route: 067
     Dates: start: 20150122

REACTIONS (3)
  - Metrorrhagia [Not Recovered/Not Resolved]
  - Obesity surgery [Recovering/Resolving]
  - Drug administration error [Unknown]

NARRATIVE: CASE EVENT DATE: 20150122
